FAERS Safety Report 7647399-0 (Version None)
Quarter: 2011Q3

REPORT INFORMATION
  Report Type: 
  Country: None (occurrence: None)
  Receive Date: 20110726
  Receipt Date: 20110719
  Transmission Date: 20111222
  Serious: Yes (Other)
  Sender: FDA-Public Use
  Company Number: 2011163068

PATIENT
  Age: 74 Year
  Sex: Female

DRUGS (8)
  1. MARCUMAR [Concomitant]
  2. ALDACTONE [Concomitant]
  3. TORSEMIDE [Concomitant]
  4. METOPROLOL SUCCINATE [Concomitant]
  5. FRAGMIN [Suspect]
     Dosage: SUBCUTANEOUS
     Route: 058
     Dates: start: 20110101
  6. CALCIMAGON-D3 (CALCIUM CARBONATE, COLECALCIFEROL) [Concomitant]
  7. FOLVITE (FOLIC ACID) [Concomitant]
  8. ZESTRIL [Concomitant]

REACTIONS (2)
  - ERYSIPELAS [None]
  - URINARY TRACT INFECTION [None]
